FAERS Safety Report 15471295 (Version 1)
Quarter: 2018Q4

REPORT INFORMATION
  Report Type: Spontaneous
  Country: US (occurrence: US)
  Receive Date: 20181006
  Receipt Date: 20181006
  Transmission Date: 20190205
  Serious: No
  Sender: FDA-Public Use
  Company Number: US-TARO-2018TAR00623

PATIENT
  Age: 77 Year
  Sex: Female
  Weight: 63.49 kg

DRUGS (1)
  1. CLOBETASOL PROPIONATE SPRAY, 0.05% [Suspect]
     Active Substance: CLOBETASOL PROPIONATE
     Indication: PSORIASIS
     Dosage: APPLY TO THE AFFECTED AREA FOR ONE WEEK THEN DECREASE, AS DIRECTED
     Route: 061
     Dates: start: 20180628, end: 20180824

REACTIONS (6)
  - Psoriasis [Recovering/Resolving]
  - Incorrect product administration duration [Recovered/Resolved]
  - Burning sensation [Recovering/Resolving]
  - Drug ineffective [Recovered/Resolved]
  - Inappropriate schedule of product administration [Recovered/Resolved]
  - Pruritus [Recovering/Resolving]

NARRATIVE: CASE EVENT DATE: 2018
